FAERS Safety Report 9337348 (Version 3)
Quarter: 2013Q4

REPORT INFORMATION
  Report Type: Report from Study
  Country: DE (occurrence: DE)
  Receive Date: 20130607
  Receipt Date: 20131115
  Transmission Date: 20140711
  Serious: Yes (Death, Hospitalization, Other)
  Sender: FDA-Public Use
  Company Number: PHHY2008DE26387

PATIENT
  Age: 84 Year
  Sex: Male
  Weight: 70 kg

DRUGS (18)
  1. AMN107 [Suspect]
     Dosage: 400 MG, DAILY
     Route: 048
     Dates: start: 20080709, end: 20080803
  2. AMN107 [Suspect]
     Dosage: 600 MG, PER DAY
     Route: 048
     Dates: start: 20080804, end: 20080816
  3. AMN107 [Suspect]
     Dosage: 600 MG, PER DAY
     Route: 048
  4. AMN107 [Suspect]
     Dosage: 800 MG, PER DAY
     Route: 048
  5. AMN107 [Suspect]
     Dosage: 400 MG, PER DAY
  6. PARACETAMOL [Concomitant]
     Indication: BACK PAIN
  7. MOVICOL [Concomitant]
     Dates: start: 20080826
  8. BISOPROLOL [Concomitant]
     Dates: start: 20050701
  9. IBUPROFEN [Concomitant]
     Dates: start: 20080728, end: 20080910
  10. DICLAC [Concomitant]
     Dates: start: 20080804, end: 20080824
  11. AMLODIPIN [Concomitant]
     Dates: start: 20080816
  12. SEVREDOL [Concomitant]
     Dates: start: 20080819, end: 20080910
  13. MATRIFEN [Concomitant]
     Dates: start: 20080819, end: 20080829
  14. CLEXANE [Concomitant]
     Dates: start: 20080829
  15. REMERGIL [Concomitant]
     Dates: start: 20080901
  16. PANTOZOL [Concomitant]
     Dates: start: 20080829
  17. ZOPICLONE [Concomitant]
     Dates: start: 20080901
  18. BIFITERAL [Concomitant]
     Dates: start: 20080819, end: 20080826

REACTIONS (6)
  - General physical health deterioration [Fatal]
  - Subileus [Recovering/Resolving]
  - Constipation [Recovered/Resolved]
  - Nausea [Recovered/Resolved]
  - Deep vein thrombosis [Recovered/Resolved]
  - Decreased appetite [Recovered/Resolved]
